FAERS Safety Report 11093452 (Version 3)
Quarter: 2015Q2

REPORT INFORMATION
  Report Type: Report from Study
  Country: US (occurrence: US)
  Receive Date: 20150506
  Receipt Date: 20150603
  Transmission Date: 20150821
  Serious: Yes (Hospitalization)
  Sender: FDA-Public Use
  Company Number: US-PFIZER INC-2015154219

PATIENT
  Age: 78 Year
  Sex: Female
  Weight: 92 kg

DRUGS (13)
  1. PLACEBO [Suspect]
     Active Substance: UNSPECIFIED INGREDIENT
     Indication: CARDIAC AMYLOIDOSIS
     Dosage: BLINDED THERAPY
     Route: 048
     Dates: start: 20150126
  2. WARFARIN [Concomitant]
     Active Substance: WARFARIN
     Indication: ANTICOAGULANT THERAPY
     Dosage: 5 MG, DAILY
     Route: 048
     Dates: start: 20140428
  3. ALLOPURINOL. [Concomitant]
     Active Substance: ALLOPURINOL
     Indication: GOUT
     Dosage: 100 MG, DAILY
     Route: 048
     Dates: start: 20141009
  4. PLACEBO [Suspect]
     Active Substance: UNSPECIFIED INGREDIENT
     Indication: CARDIAC AMYLOIDOSIS
     Dosage: BLINDED THERAPY
     Route: 048
     Dates: start: 20150126
  5. BLINDED TAFAMIDIS MEGLUMINE [Suspect]
     Active Substance: TAFAMIDIS MEGLUMINE
     Indication: CARDIAC AMYLOIDOSIS
     Dosage: BLINDED THERAPY
     Route: 048
     Dates: start: 20150126
  6. HYDRALAZINE [Suspect]
     Active Substance: HYDRALAZINE HYDROCHLORIDE
     Indication: HYPERTENSION
     Dosage: 25 MG, BID
     Route: 048
     Dates: start: 20150428, end: 20150503
  7. SPIRONOLACTONE. [Suspect]
     Active Substance: SPIRONOLACTONE
     Indication: HYPERTENSION
     Dosage: 25 MG, DAILY
     Route: 048
     Dates: start: 20140428, end: 20150503
  8. SPIRONOLACTONE. [Suspect]
     Active Substance: SPIRONOLACTONE
     Indication: DIVERTICULITIS
  9. MOMETASONE [Concomitant]
     Active Substance: MOMETASONE
     Indication: PRURITUS
     Dosage: 0.1 %, AS NEEDED
     Route: 061
     Dates: start: 20141004
  10. TORSEMIDE. [Concomitant]
     Active Substance: TORSEMIDE
     Indication: DIVERTICULITIS
     Dosage: 100 MG AM, 50 MG PM, BID
     Route: 048
     Dates: start: 20140428
  11. BLINDED TAFAMIDIS MEGLUMINE [Suspect]
     Active Substance: TAFAMIDIS MEGLUMINE
     Indication: CARDIAC AMYLOIDOSIS
     Dosage: BLINDED THERAPY
     Route: 048
     Dates: start: 20150126
  12. MAGNESIUM [Concomitant]
     Active Substance: MAGNESIUM
     Indication: CONSTIPATION
     Dosage: 500 MG, DAILY
     Route: 048
     Dates: start: 20141221
  13. METOLAZONE. [Concomitant]
     Active Substance: METOLAZONE
     Indication: DIVERTICULITIS
     Dosage: 5 MG, DAILY
     Route: 048
     Dates: start: 20140428

REACTIONS (1)
  - Mental status changes [Recovered/Resolved]

NARRATIVE: CASE EVENT DATE: 20150503
